FAERS Safety Report 9030434 (Version 1)
Quarter: 2013Q1

REPORT INFORMATION
  Report Type: Spontaneous
  Country: US (occurrence: US)
  Receive Date: 20130122
  Receipt Date: 20130122
  Transmission Date: 20140127
  Serious: Yes (Other)
  Sender: FDA-Public Use
  Company Number: US-ROCHE-1148910

PATIENT
  Age: 13 Year
  Sex: Male

DRUGS (1)
  1. ACCUTANE [Suspect]
     Indication: ACNE
     Dosage: 40 MG
     Route: 065
     Dates: start: 20040513, end: 20050107

REACTIONS (6)
  - Inflammatory bowel disease [Unknown]
  - Anxiety [Unknown]
  - Epistaxis [Recovered/Resolved]
  - Lip dry [Recovered/Resolved]
  - Headache [Recovered/Resolved]
  - Dry skin [Unknown]
